FAERS Safety Report 19275063 (Version 2)
Quarter: 2021Q2

REPORT INFORMATION
  Report Type: Other
  Country: US (occurrence: US)
  Receive Date: 20210519
  Receipt Date: 20210621
  Transmission Date: 20210717
  Serious: Yes (Other)
  Sender: FDA-Public Use
  Company Number: US-ROCHE-2829060

PATIENT
  Sex: Female

DRUGS (11)
  1. HYDRALAZINE HCL [Concomitant]
     Active Substance: HYDRALAZINE HYDROCHLORIDE
  2. FERROUS SULFATE. [Concomitant]
     Active Substance: FERROUS SULFATE
  3. IRON [Concomitant]
     Active Substance: IRON
  4. METOPROLOL TARTRATE. [Concomitant]
     Active Substance: METOPROLOL TARTRATE
  5. ATORVASTATIN CALCIUM. [Concomitant]
     Active Substance: ATORVASTATIN CALCIUM
  6. ASPRIN [Concomitant]
     Active Substance: ASPIRIN
  7. ZOFRAN [Concomitant]
     Active Substance: ONDANSETRON HYDROCHLORIDE
  8. OXYCODONE AND ACETAMINOPHEN [Concomitant]
     Active Substance: ACETAMINOPHEN\OXYCODONE HYDROCHLORIDE
  9. PROCHLORPERAZINE. [Concomitant]
     Active Substance: PROCHLORPERAZINE
  10. LOVENOX [Concomitant]
     Active Substance: ENOXAPARIN SODIUM
  11. XELODA [Suspect]
     Active Substance: CAPECITABINE
     Indication: COLORECTAL CANCER METASTATIC
     Dosage: TAKE 3 TABLET(S) BY MOUTH TWICE A DAY 2 WEEK(S) ON
     Route: 048

REACTIONS (9)
  - Weight decreased [Unknown]
  - Illness [Unknown]
  - Arthritis [Unknown]
  - Eye contusion [Unknown]
  - Dysgeusia [Unknown]
  - Cerebrovascular accident [Unknown]
  - Fall [Unknown]
  - Head injury [Unknown]
  - Feeling abnormal [Unknown]
